FAERS Safety Report 14894495 (Version 3)
Quarter: 2018Q3

REPORT INFORMATION
  Report Type: Report from Study
  Country: US (occurrence: US)
  Receive Date: 20180515
  Receipt Date: 20180723
  Transmission Date: 20181010
  Serious: Yes (Other)
  Sender: FDA-Public Use
  Company Number: US-AMGEN-USASL2018063486

PATIENT
  Age: 30 Year
  Sex: Female

DRUGS (1)
  1. ENBREL [Suspect]
     Active Substance: ETANERCEPT
     Indication: RHEUMATOID ARTHRITIS
     Dosage: 50 MG, QWK
     Route: 058

REACTIONS (6)
  - Rheumatoid arthritis [Unknown]
  - Hordeolum [Not Recovered/Not Resolved]
  - Urinary tract infection [Unknown]
  - Fungal infection [Not Recovered/Not Resolved]
  - Conjunctivitis [Recovered/Resolved]
  - Kidney infection [Unknown]
